FAERS Safety Report 5401785-8 (Version None)
Quarter: 2007Q3

REPORT INFORMATION
  Report Type: 
  Country: None (occurrence: None)
  Receive Date: 20070731
  Receipt Date: 20070720
  Transmission Date: 20080115
  Serious: Yes (Hospitalization)
  Sender: FDA-Public Use
  Company Number: JP-AMGEN-US208596

PATIENT
  Sex: Female
  Weight: 73 kg

DRUGS (11)
  1. ENBREL [Suspect]
     Indication: RHEUMATOID ARTHRITIS
     Route: 058
     Dates: start: 20060404
  2. MAGNESIUM OXIDE [Concomitant]
     Dosage: UNKNOWN
     Route: 048
  3. URSO 250 [Concomitant]
     Dosage: UNKNOWN
     Route: 048
  4. OMEPRAZOLE [Concomitant]
     Dosage: UNKNOWN
     Route: 048
  5. ETODOLAC [Concomitant]
     Dosage: UNKNOWN
     Route: 048
  6. BAKTAR [Concomitant]
     Dosage: UNKNOWN
     Route: 048
  7. ALFACALCIDOL [Concomitant]
     Dosage: UNKNOWN
     Route: 048
  8. BONALON [Concomitant]
     Dosage: UNKNOWN
     Route: 048
  9. RINDERON [Concomitant]
     Dosage: UNKNOWN
     Route: 048
  10. VOLTAREN [Concomitant]
     Dosage: UNKNOWN
     Route: 048
  11. VITAMEDIN [Concomitant]
     Dosage: UNKNOWN
     Route: 048

REACTIONS (2)
  - EXTREMITY NECROSIS [None]
  - VASCULITIS [None]
